FAERS Safety Report 18439889 (Version 1)
Quarter: 2020Q4

REPORT INFORMATION
  Report Type: Spontaneous
  Country: NO (occurrence: NO)
  Receive Date: 20201029
  Receipt Date: 20201029
  Transmission Date: 20210114
  Serious: Yes (Life-Threatening, Other)
  Sender: FDA-Public Use
  Company Number: NO-TEVA-2020-NO-1841435

PATIENT
  Age: 36 Year
  Sex: Male
  Weight: 130 kg

DRUGS (5)
  1. BENZATHINE PHENOXYMETHYL PENICILLIN [Concomitant]
     Active Substance: PENICILLIN V BENZATHINE
     Indication: SINUSITIS
     Dosage: FOR 10 DAYS
  2. LISINOPRIL RATIOPHARM [Suspect]
     Active Substance: LISINOPRIL
     Indication: HYPERTENSION
     Dates: start: 20200725, end: 20200929
  3. BUFOMIX EASYHALER [Concomitant]
     Active Substance: BUDESONIDE\FORMOTEROL FUMARATE
  4. AERIUS [Concomitant]
     Dates: start: 20200301, end: 20200716
  5. VENTOLINE [Concomitant]
     Active Substance: ALBUTEROL

REACTIONS (14)
  - Chest pain [Recovering/Resolving]
  - Head discomfort [Recovering/Resolving]
  - Swelling [Unknown]
  - Weight increased [Recovering/Resolving]
  - Somnolence [Unknown]
  - Dyspnoea [Recovering/Resolving]
  - Fatigue [Unknown]
  - Dizziness [Unknown]
  - Headache [Unknown]
  - Photophobia [Unknown]
  - Presyncope [Unknown]
  - Sinusitis [Unknown]
  - Pharyngeal swelling [Unknown]
  - Physical disability [Unknown]

NARRATIVE: CASE EVENT DATE: 20200801
